FAERS Safety Report 11394775 (Version 1)
Quarter: 2015Q3

REPORT INFORMATION
  Report Type: Spontaneous
  Country: IN (occurrence: None)
  Receive Date: 20150817
  Receipt Date: 20150817
  Transmission Date: 20151125
  Serious: Yes (Other)
  Sender: FDA-Public Use
  Company Number: None

PATIENT
  Age: 33 Year
  Sex: Male
  Weight: 45 kg

DRUGS (1)
  1. AMPHETAMINE [Suspect]
     Active Substance: AMPHETAMINE

REACTIONS (10)
  - Insomnia [None]
  - Blood triglycerides decreased [None]
  - Nail pterygium [None]
  - Blood glucose increased [None]
  - Nail discolouration [None]
  - Clubbing [None]
  - Paronychia [None]
  - Skin lesion [None]
  - Toxicity to various agents [None]
  - Skin hyperpigmentation [None]

NARRATIVE: CASE EVENT DATE: 20150115
